FAERS Safety Report 25822717 (Version 1)
Quarter: 2025Q3

REPORT INFORMATION
  Report Type: Spontaneous
  Country: US (occurrence: US)
  Receive Date: 20250919
  Receipt Date: 20250919
  Transmission Date: 20251020
  Serious: No
  Sender: VIVUS
  Company Number: US-VIVUS LLC-2025V10000261

PATIENT

DRUGS (3)
  1. QSYMIA [Suspect]
     Active Substance: PHENTERMINE HYDROCHLORIDE\TOPIRAMATE
     Indication: Weight decreased
     Dosage: UNK, QD
     Route: 048
  2. QSYMIA [Suspect]
     Active Substance: PHENTERMINE HYDROCHLORIDE\TOPIRAMATE
     Indication: Migraine
  3. TOPAMAX [Concomitant]
     Active Substance: TOPIRAMATE
     Indication: Migraine

REACTIONS (5)
  - Lethargy [Not Recovered/Not Resolved]
  - Somnambulism [Not Recovered/Not Resolved]
  - Malaise [Not Recovered/Not Resolved]
  - Asthenopia [Not Recovered/Not Resolved]
  - Off label use [Unknown]
